FAERS Safety Report 20315423 (Version 3)
Quarter: 2023Q4

REPORT INFORMATION
  Report Type: Spontaneous
  Country: US (occurrence: US)
  Receive Date: 20220110
  Receipt Date: 20231112
  Transmission Date: 20240110
  Serious: Yes (Other)
  Sender: FDA-Public Use
  Company Number: US-JNJFOC-20220108159

PATIENT
  Age: 6 Decade
  Sex: Female

DRUGS (34)
  1. ELMIRON [Suspect]
     Active Substance: PENTOSAN POLYSULFATE SODIUM
     Indication: Cystitis interstitial
     Route: 048
     Dates: end: 2006
  2. ELMIRON [Suspect]
     Active Substance: PENTOSAN POLYSULFATE SODIUM
     Route: 048
     Dates: start: 2006, end: 2010
  3. ELMIRON [Suspect]
     Active Substance: PENTOSAN POLYSULFATE SODIUM
     Route: 048
     Dates: start: 2010, end: 20200106
  4. ELMIRON [Suspect]
     Active Substance: PENTOSAN POLYSULFATE SODIUM
     Route: 048
  5. ALAWAY [Concomitant]
     Active Substance: KETOTIFEN FUMARATE
     Dosage: OPHTHALMIC DROPS
     Route: 047
     Dates: start: 2019
  6. CLOBETASOL [Concomitant]
     Active Substance: CLOBETASOL
     Indication: Eczema
     Dates: start: 2004
  7. SIMETHICONE (DIMETHICONE) [Concomitant]
     Active Substance: DIMETHICONE
     Dates: start: 2019
  8. CETIRIZINE HYDROCHLORIDE [Concomitant]
     Active Substance: CETIRIZINE HYDROCHLORIDE
     Indication: Hypersensitivity
     Dates: start: 2017
  9. CIPROFLOXACIN [Concomitant]
     Active Substance: CIPROFLOXACIN
     Indication: Drug therapy
     Dates: start: 2004
  10. HYDROXYZINE [Concomitant]
     Active Substance: HYDROXYZINE HYDROCHLORIDE
     Indication: Cystitis interstitial
     Dates: start: 2005
  11. LORAZEPAM [Concomitant]
     Active Substance: LORAZEPAM
     Indication: Pouchitis
     Dates: start: 2006
  12. LORAZEPAM [Concomitant]
     Active Substance: LORAZEPAM
     Indication: Colitis ulcerative
  13. LEVOTHYROXINE [Concomitant]
     Active Substance: LEVOTHYROXINE
     Indication: Hypothyroidism
     Dates: start: 2006
  14. AMITRIPTYLINE [Concomitant]
     Active Substance: AMITRIPTYLINE
     Indication: Cystitis interstitial
     Dates: start: 2006
  15. POLYVINYL ALCOHOL;POVIDONE [Concomitant]
     Indication: Dry eye
     Dates: start: 2019
  16. ARMOUR THYROID [Concomitant]
     Active Substance: THYROID, PORCINE
     Indication: Hypothyroidism
     Dates: start: 2017
  17. BUDESONIDE [Concomitant]
     Active Substance: BUDESONIDE
     Indication: Colitis ulcerative
     Dates: start: 2019
  18. BUDESONIDE [Concomitant]
     Active Substance: BUDESONIDE
     Indication: Pouchitis
  19. OMEPRAZOLE [Concomitant]
     Active Substance: OMEPRAZOLE
     Indication: Colitis ulcerative
     Dates: start: 2018
  20. OMEPRAZOLE [Concomitant]
     Active Substance: OMEPRAZOLE
     Indication: Pouchitis
  21. MIRTAZAPINE [Concomitant]
     Active Substance: MIRTAZAPINE
     Indication: Colitis ulcerative
     Dates: start: 2020
  22. MIRTAZAPINE [Concomitant]
     Active Substance: MIRTAZAPINE
     Indication: Pouchitis
  23. BENGEL [Concomitant]
     Indication: Acne
     Dates: start: 2019
  24. ONDANSETRON [Concomitant]
     Active Substance: ONDANSETRON
     Indication: Nausea
     Dates: start: 2017
  25. EPINEPHRINE [Concomitant]
     Active Substance: EPINEPHRINE
     Indication: Multiple allergies
     Dates: start: 2019
  26. ESTRADIOL [Concomitant]
     Active Substance: ESTRADIOL
     Indication: Cystitis interstitial
     Dates: start: 2019
  27. FAMOTIDINE [Concomitant]
     Active Substance: FAMOTIDINE
     Indication: Colitis ulcerative
     Dates: start: 2020
  28. FAMOTIDINE [Concomitant]
     Active Substance: FAMOTIDINE
     Indication: Pouchitis
  29. FLUTICASONE [Concomitant]
     Active Substance: FLUTICASONE
     Indication: Seasonal allergy
     Dates: start: 2017
  30. LATANOPROST [Concomitant]
     Active Substance: LATANOPROST
     Indication: Glaucoma
     Dates: start: 2019
  31. OPIUM TINCTURE [Concomitant]
     Active Substance: MORPHINE
     Indication: Colitis ulcerative
     Dates: start: 2019
  32. OPIUM TINCTURE [Concomitant]
     Active Substance: MORPHINE
     Indication: Pouchitis
  33. KETOCONAZOLE [Concomitant]
     Active Substance: KETOCONAZOLE
     Indication: Drug therapy
     Dates: start: 2019
  34. SIMVASTATIN [Concomitant]
     Active Substance: SIMVASTATIN

REACTIONS (4)
  - Macular degeneration [Not Recovered/Not Resolved]
  - Maculopathy [Unknown]
  - Off label use [Unknown]
  - Incorrect dose administered [Unknown]

NARRATIVE: CASE EVENT DATE: 20060101
